FAERS Safety Report 19504617 (Version 2)
Quarter: 2021Q3

REPORT INFORMATION
  Report Type: Spontaneous
  Country: US (occurrence: US)
  Receive Date: 20210708
  Receipt Date: 20210928
  Transmission Date: 20211014
  Serious: Yes (Life-Threatening, Hospitalization, Other)
  Sender: FDA-Public Use
  Company Number: US-DRREDDYS-SPO/USA/21/0137360

PATIENT
  Age: 56 Year
  Sex: Female

DRUGS (6)
  1. IMMUNOGLOBULINS [Concomitant]
     Indication: DEEP VEIN THROMBOSIS POSTOPERATIVE
  2. HEPARIN SODIUM. [Suspect]
     Active Substance: HEPARIN SODIUM
     Indication: DEEP VEIN THROMBOSIS
  3. ACETYLSALICYLIC ACID [Concomitant]
     Active Substance: ASPIRIN
     Indication: PRODUCT USED FOR UNKNOWN INDICATION
  4. IMMUNOGLOBULINS [Concomitant]
     Indication: IMMUNE THROMBOCYTOPENIA
  5. HEPARIN SODIUM. [Suspect]
     Active Substance: HEPARIN SODIUM
     Indication: PULMONARY EMBOLISM
  6. IMMUNOGLOBULINS [Concomitant]
     Indication: PULMONARY EMBOLISM

REACTIONS (2)
  - Condition aggravated [Recovered/Resolved]
  - Spontaneous heparin-induced thrombocytopenia syndrome [Recovered/Resolved]
